FAERS Safety Report 7041793-7 (Version None)
Quarter: 2010Q3

REPORT INFORMATION
  Report Type: 
  Country: None (occurrence: None)
  Receive Date: 20100929
  Receipt Date: 20100824
  Transmission Date: 20110219
  Serious: No
  Sender: FDA-Public Use
  Company Number: US-WYE-H17156910

PATIENT
  Age: 38 Year
  Sex: Female

DRUGS (2)
  1. PRISTIQ [Suspect]
     Dosage: 100 MG, FREQUENCY NOT SPECIFIED
  2. VYVANSE [Concomitant]

REACTIONS (1)
  - ALOPECIA [None]
